FAERS Safety Report 24283074 (Version 1)
Quarter: 2024Q3

REPORT INFORMATION
  Report Type: Spontaneous
  Country: US (occurrence: None)
  Receive Date: 20240903
  Receipt Date: 20240903
  Transmission Date: 20241016
  Serious: Yes (unspecified)
  Sender: Public
  Company Number: None

PATIENT
  Age: 36 Year
  Sex: Female
  Weight: 55.34 kg

DRUGS (5)
  1. MIRENA [Suspect]
     Active Substance: LEVONORGESTREL
  2. Adderall 30mg [Concomitant]
  3. Alprazolam 5mg [Concomitant]
  4. Olly women^s multivitamin gummies [Concomitant]
  5. Olly probiotic gummies [Concomitant]

REACTIONS (6)
  - Surgery [None]
  - Constipation [None]
  - Diarrhoea [None]
  - Haemorrhoids [None]
  - Abdominal discomfort [None]
  - Weight decreased [None]

NARRATIVE: CASE EVENT DATE: 20240426
